FAERS Safety Report 14714023 (Version 1)
Quarter: 2018Q2

REPORT INFORMATION
  Report Type: Spontaneous
  Country: US (occurrence: US)
  Receive Date: 20180404
  Receipt Date: 20180404
  Transmission Date: 20180711
  Serious: No
  Sender: FDA-Public Use
  Company Number: US-009507513-1803USA006446

PATIENT
  Age: 27 Year
  Sex: Female
  Weight: 202 kg

DRUGS (1)
  1. NEXPLANON [Suspect]
     Active Substance: ETONOGESTREL
     Indication: CONTRACEPTION
     Dosage: 1 ROD EVERY THREE YEARS
     Route: 059
     Dates: start: 20180207

REACTIONS (8)
  - Pain [Unknown]
  - Pain in extremity [Unknown]
  - Movement disorder [Unknown]
  - Implant site pain [Unknown]
  - Discomfort [Unknown]
  - Device dislocation [Unknown]
  - Product quality issue [Unknown]
  - Limb discomfort [Unknown]

NARRATIVE: CASE EVENT DATE: 2018
